FAERS Safety Report 4734117-9 (Version None)
Quarter: 2005Q3

REPORT INFORMATION
  Report Type: 
  Country: None (occurrence: None)
  Receive Date: 20050729
  Receipt Date: 20050720
  Transmission Date: 20060218
  Serious: Yes (Hospitalization, Other)
  Sender: FDA-Public Use
  Company Number: 2005078487

PATIENT
  Age: 33 Year
  Sex: Female
  Weight: 145.151 kg

DRUGS (5)
  1. BEXTRA [Suspect]
     Indication: FIBROMYALGIA
     Dosage: 20 MG (20 MG, 1 IN 1 D), ORAL
     Route: 048
     Dates: start: 20020101, end: 20050408
  2. SYNTHROID [Concomitant]
  3. LASIX [Concomitant]
  4. ZOLOFT [Concomitant]
  5. EFFEXOR [Concomitant]

REACTIONS (13)
  - ACNE [None]
  - APPENDICECTOMY [None]
  - BLOOD BLISTER [None]
  - FLUSHING [None]
  - FURUNCLE [None]
  - HYPOTHYROIDISM [None]
  - IMPAIRED HEALING [None]
  - INCISION SITE COMPLICATION [None]
  - IRRITABLE BOWEL SYNDROME [None]
  - OVARIAN CYST [None]
  - OVARIAN ENLARGEMENT [None]
  - RASH [None]
  - SCAR [None]
